FAERS Safety Report 15325626 (Version 2)
Quarter: 2018Q3

REPORT INFORMATION
  Report Type: Spontaneous
  Country: IT (occurrence: IT)
  Receive Date: 20180828
  Receipt Date: 20180831
  Transmission Date: 20181010
  Serious: Yes (Life-Threatening)
  Sender: FDA-Public Use
  Company Number: PHHY2018IT083056

PATIENT
  Age: 71 Year
  Sex: Female

DRUGS (3)
  1. DEPAKIN [Suspect]
     Active Substance: VALPROATE SODIUM
     Indication: EPILEPSY
     Dosage: UNK UNK,UNK
     Route: 040
     Dates: start: 20170823
  2. LEVOFLOXACIN. [Suspect]
     Active Substance: LEVOFLOXACIN
     Indication: BACTERIAL INFECTION
     Dosage: 500 MG, QD
     Route: 048
     Dates: start: 20170821
  3. LEVOFLOXACIN. [Suspect]
     Active Substance: LEVOFLOXACIN
     Dosage: 500 MG, QD
     Route: 048
     Dates: start: 20170822

REACTIONS (2)
  - Drug ineffective [Recovered/Resolved]
  - Epilepsy [Recovered/Resolved]

NARRATIVE: CASE EVENT DATE: 20170823
